FAERS Safety Report 8607293 (Version 3)
Quarter: 2013Q3

REPORT INFORMATION
  Report Type: Spontaneous
  Country: US (occurrence: US)
  Receive Date: 20120611
  Receipt Date: 20130924
  Transmission Date: 20140515
  Serious: Yes (Hospitalization, Other)
  Sender: FDA-Public Use
  Company Number: US-ASTRAZENECA-2012SE35150

PATIENT
  Age: 70 Year
  Sex: Female
  Weight: 120.2 kg

DRUGS (13)
  1. NEXIUM [Suspect]
     Indication: GASTROOESOPHAGEAL REFLUX DISEASE
     Dosage: ONCE
     Route: 048
     Dates: start: 1995, end: 2010
  2. NEXIUM [Suspect]
     Indication: GASTROOESOPHAGEAL REFLUX DISEASE
     Route: 048
     Dates: start: 20080508
  3. PLAVIX [Concomitant]
     Dates: start: 20080508
  4. ISOSORBIDE MN [Concomitant]
     Dates: start: 20080508
  5. SIMVASTATIN [Concomitant]
     Dates: start: 20080508
  6. CYMBALTA [Concomitant]
     Dates: start: 20080508
  7. FUROSEMIDE [Concomitant]
     Dates: start: 20080531
  8. METOPROLOL TARTA [Concomitant]
     Dates: start: 20080508
  9. PEPCID [Concomitant]
     Dates: start: 2012
  10. CLONAZEPAM [Concomitant]
     Dates: start: 20080508
  11. GABAPENTIN [Concomitant]
     Dates: start: 20080508
  12. ASPIRIN [Concomitant]
     Dates: start: 20080508
  13. PRIMIDONE [Concomitant]
     Dates: start: 20080703

REACTIONS (24)
  - Chest pain [Unknown]
  - Abscess [Unknown]
  - Femur fracture [Unknown]
  - Cerebrovascular accident [Unknown]
  - Cardiac disorder [Unknown]
  - Arthropathy [Unknown]
  - Cyst [Unknown]
  - Myocardial infarction [Unknown]
  - Transient ischaemic attack [Unknown]
  - Fall [Unknown]
  - Convulsion [Unknown]
  - Hip fracture [Unknown]
  - Spinal fracture [Unknown]
  - Osteoporosis [Unknown]
  - Wrist fracture [Unknown]
  - Bone density decreased [Unknown]
  - Multiple fractures [Unknown]
  - Foot fracture [Unknown]
  - Ankle fracture [Unknown]
  - Angina pectoris [Unknown]
  - Liver disorder [Unknown]
  - Vitamin D deficiency [Unknown]
  - Osteopenia [Unknown]
  - Arthritis [Unknown]
